FAERS Safety Report 17076378 (Version 1)
Quarter: 2019Q4

REPORT INFORMATION
  Report Type: Spontaneous
  Country: NL (occurrence: NL)
  Receive Date: 20191126
  Receipt Date: 20191126
  Transmission Date: 20200122
  Serious: Yes (Other)
  Sender: FDA-Public Use
  Company Number: NL-MYLANLABS-2019M1114280

PATIENT
  Sex: Female
  Weight: 68 kg

DRUGS (4)
  1. THYRAX                             /00068001/ [Concomitant]
     Active Substance: LEVOTHYROXINE
     Dosage: UNK
  2. VITAMIN D3 [Concomitant]
     Active Substance: CHOLECALCIFEROL
     Dosage: UNK
  3. LETROZOLE. [Suspect]
     Active Substance: LETROZOLE
     Indication: BREAST CANCER
     Dosage: 1 X PER DAG 1 TABLET
     Route: 048
     Dates: start: 20190116
  4. ZOLPIDEM [Concomitant]
     Active Substance: ZOLPIDEM TARTRATE
     Dosage: 10 MG , 1/4 TABLET SOMS

REACTIONS (3)
  - Cataract [Recovered/Resolved with Sequelae]
  - Condition aggravated [Recovered/Resolved with Sequelae]
  - Corneal disorder [Recovered/Resolved with Sequelae]
